FAERS Safety Report 12258351 (Version 2)
Quarter: 2016Q2

REPORT INFORMATION
  Report Type: Spontaneous
  Country: US (occurrence: US)
  Receive Date: 20160412
  Receipt Date: 20160511
  Transmission Date: 20160815
  Serious: Yes (Hospitalization)
  Sender: FDA-Public Use
  Company Number: US-009507513-1604USA006852

PATIENT
  Sex: Female

DRUGS (6)
  1. PRINIVIL [Concomitant]
     Active Substance: LISINOPRIL
     Route: 048
  2. SPIRIVA [Concomitant]
     Active Substance: TIOTROPIUM BROMIDE MONOHYDRATE
  3. PROVENTIL [Concomitant]
     Active Substance: ALBUTEROL
  4. ADVAIR HFA [Concomitant]
     Active Substance: FLUTICASONE PROPIONATE\SALMETEROL XINAFOATE
  5. SINGULAIR [Concomitant]
     Active Substance: MONTELUKAST SODIUM
  6. FOSAMAX [Suspect]
     Active Substance: ALENDRONATE SODIUM
     Indication: BONE DENSITY ABNORMAL
     Dosage: UNK
     Route: 048
     Dates: start: 1999

REACTIONS (2)
  - Lower limb fracture [Not Recovered/Not Resolved]
  - Fall [Not Recovered/Not Resolved]
